FAERS Safety Report 5040667-0 (Version None)
Quarter: 2006Q2

REPORT INFORMATION
  Report Type: 
  Country: None (occurrence: None)
  Receive Date: 20060629
  Receipt Date: 20060629
  Transmission Date: 20061013
  Serious: No
  Sender: FDA-Public Use
  Company Number: None

PATIENT
  Sex: Female

DRUGS (3)
  1. SINGULAIR [Suspect]
     Indication: RHINITIS ALLERGIC
     Dosage: ONE PO QD
     Route: 048
     Dates: start: 20060110, end: 20060228
  2. SINGULAIR [Suspect]
     Indication: RHINITIS ALLERGIC
     Dosage: ONE PO QD
     Route: 048
     Dates: start: 20060609, end: 20060612
  3. ALLEGRA [Concomitant]

REACTIONS (1)
  - MUSCULOSKELETAL DISCOMFORT [None]
